FAERS Safety Report 4742461-4 (Version None)
Quarter: 2005Q3

REPORT INFORMATION
  Report Type: 
  Country: None (occurrence: None)
  Receive Date: 20050811
  Receipt Date: 20050620
  Transmission Date: 20060218
  Serious: Yes (Hospitalization)
  Sender: FDA-Public Use
  Company Number: US-SOLVAY-00205002010

PATIENT
  Age: 46 Year
  Sex: Male
  Weight: 222 kg

DRUGS (8)
  1. ANDROGEL [Suspect]
     Indication: BLOOD TESTOSTERONE DECREASED
     Dosage: DAILY DOSE: 5 GRAM(S)
     Route: 062
     Dates: start: 20030101, end: 20040201
  2. AVANDIA [Concomitant]
     Indication: DIABETES MELLITUS NON-INSULIN-DEPENDENT
     Dosage: DAILY DOSE: 8 MILLIGRAM(S)
     Route: 048
  3. METFORMIN [Concomitant]
     Indication: DIABETES MELLITUS NON-INSULIN-DEPENDENT
     Dosage: DAILY DOSE: 2000 MILLIGRAM(S)
     Route: 048
  4. SLIDING SCALE INSULIN HUMALOG [Concomitant]
     Indication: DIABETES MELLITUS NON-INSULIN-DEPENDENT
     Dosage: DAILY DOSE:  UNKNOWN
     Route: 058
  5. ATENOLOL [Concomitant]
     Indication: CARDIAC FAILURE
     Dosage: DAILY DOSE: 15 MILLIGRAM(S)
     Route: 048
     Dates: end: 20050401
  6. LISINOPRIL [Concomitant]
     Indication: CARDIAC FAILURE
     Dosage: DAILY DOSE: 20 MILLIGRAM(S)
     Route: 048
  7. LASIX [Concomitant]
     Indication: CARDIAC FAILURE
     Dosage: DAILY DOSE: 40 MILLIGRAM(S)
     Route: 048
  8. K-DUR 10 [Concomitant]
     Indication: MINERAL SUPPLEMENTATION
     Dosage: DAILY DOSE: 20 MILLIEQUIVALENT(S)
     Route: 048

REACTIONS (2)
  - DRUG INEFFECTIVE [None]
  - PULMONARY EMBOLISM [None]
